FAERS Safety Report 22335795 (Version 2)
Quarter: 2023Q2

REPORT INFORMATION
  Report Type: Other
  Country: IT (occurrence: IT)
  Receive Date: 20230518
  Receipt Date: 20230525
  Transmission Date: 20230721
  Serious: Yes (Other)
  Sender: FDA-Public Use
  Company Number: IT-CELLTRION INC.-2023IT010172

PATIENT

DRUGS (5)
  1. INFLIXIMAB [Suspect]
     Active Substance: INFLIXIMAB
     Indication: Psoriasis
     Dosage: 120MG
     Route: 058
     Dates: start: 20221123, end: 202304
  2. XARELTO [Concomitant]
     Active Substance: RIVAROXABAN
  3. TAPAZOLE [Concomitant]
     Active Substance: METHIMAZOLE
  4. RIFAXIMIN [Concomitant]
     Active Substance: RIFAXIMIN
  5. FLECAINIDE ACETATE [Concomitant]
     Active Substance: FLECAINIDE ACETATE

REACTIONS (3)
  - Haematuria [Recovered/Resolved with Sequelae]
  - Back pain [Recovered/Resolved with Sequelae]
  - Urinary tract infection [Recovered/Resolved with Sequelae]

NARRATIVE: CASE EVENT DATE: 20230402
